FAERS Safety Report 7025390-5 (Version None)
Quarter: 2010Q4

REPORT INFORMATION
  Report Type: 
  Country: None (occurrence: None)
  Receive Date: 20101001
  Receipt Date: 20100922
  Transmission Date: 20110411
  Serious: Yes (Disabling)
  Sender: FDA-Public Use
  Company Number: PHHY2010IR62823

PATIENT
  Age: 60 Year
  Sex: Male

DRUGS (2)
  1. ACLASTA [Suspect]
     Indication: OSTEOPOROSIS
     Dosage: 5 MG ONCE YEARLY
     Route: 042
  2. CALCIUM [Concomitant]

REACTIONS (3)
  - GENERALISED OEDEMA [None]
  - PARAESTHESIA [None]
  - PARAPLEGIA [None]
